FAERS Safety Report 22179760 (Version 2)
Quarter: 2023Q2

REPORT INFORMATION
  Report Type: Spontaneous
  Country: US (occurrence: US)
  Receive Date: 20230406
  Receipt Date: 20230413
  Transmission Date: 20230721
  Serious: Yes (Other)
  Sender: FDA-Public Use
  Company Number: US-JNJFOC-20230371156

PATIENT
  Sex: Female

DRUGS (6)
  1. VELETRI [Suspect]
     Active Substance: EPOPROSTENOL
     Indication: Product used for unknown indication
     Route: 042
  2. AMBRISENTAN [Suspect]
     Active Substance: AMBRISENTAN
     Indication: Product used for unknown indication
     Route: 048
     Dates: start: 20220316
  3. AMBRISENTAN [Suspect]
     Active Substance: AMBRISENTAN
     Route: 048
     Dates: start: 20220316
  4. OFEV [Concomitant]
     Active Substance: NINTEDANIB
  5. WARFARIN [Concomitant]
     Active Substance: WARFARIN
  6. ADCIRCA [Concomitant]
     Active Substance: TADALAFIL

REACTIONS (5)
  - Coma [Unknown]
  - Diarrhoea [Not Recovered/Not Resolved]
  - Pain in extremity [Unknown]
  - Device occlusion [Unknown]
  - Underdose [Unknown]
